FAERS Safety Report 9023577 (Version 2)
Quarter: 2013Q1

REPORT INFORMATION
  Report Type: Spontaneous
  Country: US (occurrence: US)
  Receive Date: 20130121
  Receipt Date: 20130221
  Transmission Date: 20140127
  Serious: Yes (Other)
  Sender: FDA-Public Use
  Company Number: PHEH2013US001595

PATIENT
  Sex: Male

DRUGS (3)
  1. TRILEPTAL [Suspect]
     Dosage: 600 MG, UNK
     Route: 048
     Dates: end: 20121224
  2. TRILEPTAL [Suspect]
     Dosage: 600 MG, UNK
     Route: 048
  3. LAMICTAL [Concomitant]

REACTIONS (2)
  - Convulsion [Unknown]
  - Fatigue [Unknown]
